FAERS Safety Report 6743316-6 (Version None)
Quarter: 2010Q2

REPORT INFORMATION
  Report Type: 
  Country: None (occurrence: None)
  Receive Date: 20100527
  Receipt Date: 20100519
  Transmission Date: 20101027
  Serious: Yes (Other)
  Sender: FDA-Public Use
  Company Number: GB-BRISTOL-MYERS SQUIBB COMPANY-15113707

PATIENT
  Sex: Male

DRUGS (1)
  1. SUSTIVA [Suspect]

REACTIONS (2)
  - DYSPHAGIA [None]
  - ROAD TRAFFIC ACCIDENT [None]
